FAERS Safety Report 9946166 (Version 1)
Quarter: 2014Q1

REPORT INFORMATION
  Report Type: Spontaneous
  Country: US (occurrence: US)
  Receive Date: 20140303
  Receipt Date: 20140303
  Transmission Date: 20141002
  Serious: No
  Sender: FDA-Public Use
  Company Number: US-AMGEN-USASP2014000006

PATIENT
  Age: 50 Year
  Sex: Female
  Weight: 83.9 kg

DRUGS (14)
  1. ENBREL [Suspect]
     Indication: PRODUCT USED FOR UNKNOWN INDICATION
     Dosage: 50 MG, QWK
     Route: 058
  2. MELOXICAM [Concomitant]
     Dosage: 7.5 MG, UNK
  3. FUROSEMIDE [Concomitant]
     Dosage: 20 MG, UNK
  4. METFORMIN [Concomitant]
     Dosage: 500 MG, UNK
  5. OMEPRAZOLE [Concomitant]
     Dosage: 20 MG, UNK
  6. AZITHROMYCIN [Concomitant]
     Dosage: 250 MG, UNK
  7. SIMVASTATIN [Concomitant]
     Dosage: 5 MG, UNK
  8. DIAZEPAM [Concomitant]
     Dosage: 2 MG, UNK
  9. GABAPENTIN [Concomitant]
     Dosage: 100 MG, UNK
  10. LOTRONEX                           /01482801/ [Concomitant]
     Dosage: 0.5 MG, UNK
  11. LEVOTHYROXIN [Concomitant]
     Dosage: 25 MUG, UNK
  12. ESTRADIOL [Concomitant]
     Dosage: 0.5 MG, UNK
  13. ASPIRIN [Concomitant]
     Dosage: 81 MG, UNK
  14. CALCIUM +D                         /00944201/ [Concomitant]
     Dosage: UNK

REACTIONS (1)
  - Sinusitis [Unknown]
